FAERS Safety Report 7027382-9 (Version None)
Quarter: 2010Q4

REPORT INFORMATION
  Report Type: 
  Country: None (occurrence: None)
  Receive Date: 20101004
  Receipt Date: 20100930
  Transmission Date: 20110411
  Serious: Yes (Death)
  Sender: FDA-Public Use
  Company Number: PHHY2010US65239

PATIENT
  Sex: Male
  Weight: 77.2 kg

DRUGS (7)
  1. EXJADE [Suspect]
     Indication: MYELODYSPLASTIC SYNDROME
     Dosage: 1500 MG DAILY
     Route: 048
     Dates: start: 20100602
  2. LITHIUM [Concomitant]
  3. CYTOMEL [Concomitant]
  4. LAMICTAL [Concomitant]
  5. SALSALATE [Concomitant]
  6. ATIVAN [Concomitant]
  7. CYCLOSPORINE [Concomitant]

REACTIONS (1)
  - DEATH [None]
